FAERS Safety Report 8190262-X (Version None)
Quarter: 2012Q1

REPORT INFORMATION
  Report Type: 
  Country: None (occurrence: None)
  Receive Date: 20120307
  Receipt Date: 20120302
  Transmission Date: 20120608
  Serious: Yes (Life-Threatening, Hospitalization, Disabling, Other)
  Sender: FDA-Public Use
  Company Number: AU-ASTRAZENECA-2012SE14629

PATIENT
  Age: 0 Day
  Sex: Female
  Weight: 2.9 kg

DRUGS (4)
  1. SEROQUEL XR [Suspect]
     Indication: PSYCHOTIC DISORDER
     Dosage: INDUCED PRE-PREGNANCY
     Route: 064
  2. FLUOXETINE [Suspect]
     Indication: ANTIDEPRESSANT THERAPY
     Dosage: STARTED PRE-PREGNANCY
     Route: 064
  3. GINGER TABLETS [Concomitant]
     Indication: ANTIEMETIC SUPPORTIVE CARE
     Dosage: DURING THE FIRST TRIMESTER
     Route: 064
  4. ELEVIT [Concomitant]
     Indication: VITAMIN SUPPLEMENTATION
     Dosage: STARTED AT THE FIRST TRIMESTER
     Route: 064

REACTIONS (3)
  - DRUG WITHDRAWAL SYNDROME NEONATAL [None]
  - RESPIRATORY DISTRESS [None]
  - DYSPHAGIA [None]
